FAERS Safety Report 8227669-8 (Version None)
Quarter: 2012Q1

REPORT INFORMATION
  Report Type: 
  Country: None (occurrence: None)
  Receive Date: 20120322
  Receipt Date: 20120316
  Transmission Date: 20120608
  Serious: Yes (Hospitalization, Disabling, Other)
  Sender: FDA-Public Use
  Company Number: US-PFIZER INC-2012070061

PATIENT
  Sex: Female
  Weight: 54.422 kg

DRUGS (2)
  1. ACETAMINOPHEN AND HYDROCODONE BITARTRATE [Suspect]
     Indication: PAIN
     Dosage: 5/500 MG, 2X/DAY
     Route: 048
  2. DETROL [Suspect]
     Indication: URINARY INCONTINENCE
     Dosage: 10 MG, 2X/DAY

REACTIONS (4)
  - ROTATOR CUFF SYNDROME [None]
  - PAIN [None]
  - GRIP STRENGTH DECREASED [None]
  - DRUG INEFFECTIVE [None]
